FAERS Safety Report 16288237 (Version 2)
Quarter: 2019Q2

REPORT INFORMATION
  Report Type: Spontaneous
  Country: DE (occurrence: DE)
  Receive Date: 20190508
  Receipt Date: 20190527
  Transmission Date: 20190711
  Serious: Yes (Other)
  Sender: FDA-Public Use
  Company Number: PHHY2019DE102735

PATIENT
  Age: 77 Year
  Sex: Female

DRUGS (3)
  1. RAMIPRIL 1A PHARMA [Suspect]
     Active Substance: RAMIPRIL
     Indication: HYPERTENSION
     Dosage: 1 DF, QD
     Route: 065
     Dates: start: 20190425, end: 20190509
  2. FOLIC ACID. [Concomitant]
     Active Substance: FOLIC ACID
     Indication: PRODUCT USED FOR UNKNOWN INDICATION
     Dosage: UNK
     Route: 065
  3. LACTASE [Concomitant]
     Active Substance: LACTASE
     Indication: PRODUCT USED FOR UNKNOWN INDICATION
     Dosage: UNK
     Route: 065

REACTIONS (11)
  - Restlessness [Unknown]
  - Hyperhidrosis [Unknown]
  - Hypertension [Unknown]
  - Eructation [Unknown]
  - Anxiety [Unknown]
  - Sleep disorder [Unknown]
  - Headache [Unknown]
  - Nausea [Unknown]
  - Cardiac discomfort [Unknown]
  - Chest pain [Unknown]
  - Feeling cold [Unknown]
